FAERS Safety Report 18851607 (Version 1)
Quarter: 2021Q1

REPORT INFORMATION
  Report Type: Spontaneous
  Country: IN (occurrence: IN)
  Receive Date: 20210205
  Receipt Date: 20210205
  Transmission Date: 20210420
  Serious: Yes (Hospitalization, Other)
  Sender: FDA-Public Use
  Company Number: IN-BAXTER-2021BAX001894

PATIENT
  Age: 25 Year
  Sex: Female

DRUGS (1)
  1. BUPICAN HEAVY [Suspect]
     Active Substance: BUPIVACAINE HYDROCHLORIDE
     Indication: SPINAL ANAESTHESIA
     Route: 037

REACTIONS (2)
  - Subarachnoid haemorrhage [Recovered/Resolved]
  - Exposure during pregnancy [Unknown]
